FAERS Safety Report 18273879 (Version 1)
Quarter: 2020Q3

REPORT INFORMATION
  Report Type: Spontaneous
  Country: FR (occurrence: FR)
  Receive Date: 20200916
  Receipt Date: 20200916
  Transmission Date: 20201103
  Serious: Yes (Death)
  Sender: FDA-Public Use
  Company Number: FR-ROCHE-2677651

PATIENT
  Age: 3 Year
  Sex: Male

DRUGS (7)
  1. CANNABIDIOL [Suspect]
     Active Substance: CANNABIDIOL
     Indication: EPILEPSY
     Route: 048
     Dates: start: 201806
  2. VALIUM [Suspect]
     Active Substance: DIAZEPAM
     Indication: STATUS EPILEPTICUS
     Dosage: UNSPECIFIED
     Route: 048
     Dates: start: 20181210, end: 20181210
  3. TETRAHYDROCANNABINOL [Suspect]
     Active Substance: DRONABINOL
     Indication: EPILEPSY
     Route: 048
     Dates: start: 201806
  4. DILANTIN [Suspect]
     Active Substance: PHENYTOIN
     Indication: STATUS EPILEPTICUS
     Route: 065
     Dates: start: 20181210, end: 20181210
  5. GARDENAL [Suspect]
     Active Substance: PHENOBARBITAL
     Indication: STATUS EPILEPTICUS
     Route: 065
     Dates: start: 20181210, end: 20181210
  6. AUGMENTIN [Concomitant]
     Active Substance: AMOXICILLIN\CLAVULANATE POTASSIUM
     Indication: INFECTION
     Dosage: NR
     Route: 065
     Dates: start: 201811
  7. EPITOMAX [Suspect]
     Active Substance: TOPIRAMATE
     Indication: STATUS EPILEPTICUS
     Route: 065
     Dates: start: 20181210, end: 20181210

REACTIONS (3)
  - Hepatitis fulminant [Fatal]
  - Disseminated intravascular coagulation [Fatal]
  - Status epilepticus [Fatal]

NARRATIVE: CASE EVENT DATE: 20181210
